FAERS Safety Report 7125996-9 (Version None)
Quarter: 2010Q4

REPORT INFORMATION
  Report Type: 
  Country: None (occurrence: None)
  Receive Date: 20101129
  Receipt Date: 20101115
  Transmission Date: 20110411
  Serious: Yes (Other)
  Sender: FDA-Public Use
  Company Number: US-ACTELION-A-NJ2010-41714

PATIENT

DRUGS (4)
  1. BOSENTAN TABLET UNKNOWN US MG [Suspect]
     Indication: PULMONARY ARTERIAL HYPERTENSION
     Dosage: 125 MG, BID
     Route: 048
     Dates: start: 20100101
  2. BOSENTAN TABLET UNKNOWN US MG [Suspect]
     Dosage: 62.5 MG, BID
     Route: 048
     Dates: start: 20101001, end: 20100101
  3. VIAGRA [Concomitant]
  4. DIURETICS [Concomitant]

REACTIONS (2)
  - GOUT [None]
  - OEDEMA PERIPHERAL [None]
